FAERS Safety Report 9897420 (Version 1)
Quarter: 2014Q1

REPORT INFORMATION
  Report Type: Spontaneous
  Country: IT (occurrence: IT)
  Receive Date: 20140214
  Receipt Date: 20140214
  Transmission Date: 20141002
  Serious: Yes (Hospitalization)
  Sender: FDA-Public Use
  Company Number: IT-ASTRAZENECA-2014SE09518

PATIENT
  Age: 15978 Day
  Sex: Male

DRUGS (3)
  1. SEROQUEL [Suspect]
     Indication: INTENTIONAL OVERDOSE
     Dosage: 1000MG
     Route: 048
     Dates: start: 20140130, end: 20140130
  2. CARBOLITHIUM [Concomitant]
     Route: 048
  3. ABILIFY [Concomitant]
     Route: 048

REACTIONS (2)
  - Intentional overdose [Recovering/Resolving]
  - Speech disorder [Recovering/Resolving]
